FAERS Safety Report 21327205 (Version 2)
Quarter: 2022Q4

REPORT INFORMATION
  Report Type: Spontaneous
  Country: BR (occurrence: BR)
  Receive Date: 20220913
  Receipt Date: 20221018
  Transmission Date: 20230113
  Serious: Yes (Other)
  Sender: FDA-Public Use
  Company Number: BR-SA-SAC20220908001403

PATIENT
  Age: 51 Year
  Sex: Male
  Weight: 100 kg

DRUGS (8)
  1. THYMOGLOBULINE [Suspect]
     Active Substance: LAPINE T-LYMPHOCYTE IMMUNE GLOBULIN
     Indication: Aplastic anaemia
     Dosage: 200 MG
     Route: 065
     Dates: start: 20220817
  2. URSODIOL [Concomitant]
     Active Substance: URSODIOL
     Indication: Liver injury
     Dosage: UNK UNK, TID
  3. URSODIOL [Concomitant]
     Active Substance: URSODIOL
     Dates: start: 20220818
  4. ACETAMINOPHEN [Concomitant]
     Active Substance: ACETAMINOPHEN
     Dosage: UNK
  5. DIPHENHYDRAMINE [Concomitant]
     Active Substance: DIPHENHYDRAMINE
     Indication: Premedication
     Dosage: UNK
  6. DIPHENHYDRAMINE [Concomitant]
     Active Substance: DIPHENHYDRAMINE
     Dates: start: 20220818
  7. HYDROCORTISONE [Concomitant]
     Active Substance: HYDROCORTISONE
     Indication: Premedication
     Dosage: UNK
  8. HYDROCORTISONE [Concomitant]
     Active Substance: HYDROCORTISONE
     Dates: start: 20220818

REACTIONS (6)
  - Hypoxia [Recovered/Resolved]
  - Heart rate increased [Unknown]
  - Respiratory rate increased [Unknown]
  - Malaise [Recovered/Resolved]
  - Chills [Recovered/Resolved]
  - Hypertension [Recovered/Resolved]

NARRATIVE: CASE EVENT DATE: 20220818
